FAERS Safety Report 22294064 (Version 2)
Quarter: 2023Q2

REPORT INFORMATION
  Report Type: Spontaneous
  Country: US (occurrence: US)
  Receive Date: 20230508
  Receipt Date: 20230531
  Transmission Date: 20230722
  Serious: No
  Sender: FDA-Public Use
  Company Number: US-PFIZER INC-202300173883

PATIENT
  Age: 10 Year
  Sex: Female
  Weight: 39.92 kg

DRUGS (2)
  1. SOMATROPIN [Suspect]
     Active Substance: SOMATROPIN
     Indication: Blood growth hormone
     Dosage: ALTERNATING 1.4MG AND 1.6 EVERY OTHER DAY
     Dates: start: 202301
  2. SOMATROPIN [Suspect]
     Active Substance: SOMATROPIN
     Dosage: ALTERNATING 1.4MG AND 1.6 EVERY OTHER DAY
     Dates: start: 202301

REACTIONS (1)
  - Device delivery system issue [Unknown]

NARRATIVE: CASE EVENT DATE: 20230406
